FAERS Safety Report 17928233 (Version 1)
Quarter: 2020Q2

REPORT INFORMATION
  Report Type: Spontaneous
  Country: US (occurrence: US)
  Receive Date: 20200622
  Receipt Date: 20200622
  Transmission Date: 20200714
  Serious: Yes (Hospitalization)
  Sender: FDA-Public Use
  Company Number: None

PATIENT
  Age: 50 Year
  Sex: Female
  Weight: 69.9 kg

DRUGS (3)
  1. CEFEPIME 1GM EVERY 24 HOURS IV [Concomitant]
     Dates: start: 20200618
  2. DEXAMETHASONE 6MG ONCE DAILY PO [Concomitant]
     Dates: start: 20200618
  3. REMDESIVIR. [Suspect]
     Active Substance: REMDESIVIR
     Indication: COVID-19
     Dates: start: 20200618, end: 20200620

REACTIONS (1)
  - Bradycardia [None]

NARRATIVE: CASE EVENT DATE: 20200619
